FAERS Safety Report 5420155-X (Version None)
Quarter: 2007Q3

REPORT INFORMATION
  Report Type: 
  Country: None (occurrence: None)
  Receive Date: 20070820
  Receipt Date: 20070801
  Transmission Date: 20080115
  Serious: No
  Sender: FDA-Public Use
  Company Number: US-BOEHRINGER INGELHEIM PHARMACEUTICALS, INC.-2007-BP-16866BP

PATIENT
  Sex: Female

DRUGS (7)
  1. AGGRENOX [Suspect]
     Indication: CEREBROVASCULAR ACCIDENT PROPHYLAXIS
     Route: 048
     Dates: start: 20070620
  2. AGGRENOX [Suspect]
     Indication: TRANSIENT ISCHAEMIC ATTACK
  3. ATENOLOL HCL [Concomitant]
     Indication: HYPERTENSION
     Route: 048
  4. PROTONIX [Concomitant]
     Indication: GASTRIC ULCER
     Route: 048
  5. EXCEDRIN [Concomitant]
     Indication: PAIN
     Route: 048
  6. MULTIVITAMIN [Concomitant]
  7. PLAVIX [Concomitant]

REACTIONS (6)
  - ABDOMINAL DISTENSION [None]
  - CONSTIPATION [None]
  - DYSPNOEA [None]
  - FATIGUE [None]
  - NAUSEA [None]
  - RASH [None]
